FAERS Safety Report 7443914-0 (Version None)
Quarter: 2011Q2

REPORT INFORMATION
  Report Type: 
  Country: None (occurrence: None)
  Receive Date: 20110429
  Receipt Date: 20110419
  Transmission Date: 20111010
  Serious: Yes (Death)
  Sender: FDA-Public Use
  Company Number: US-BIOGENIDEC-2007BI004019

PATIENT
  Sex: Male

DRUGS (5)
  1. ALLEGRA [Concomitant]
  2. TYSABRI [Suspect]
     Indication: MULTIPLE SCLEROSIS
     Route: 042
     Dates: start: 20061114, end: 20070119
  3. LESCOL [Concomitant]
  4. DESYREL [Concomitant]
  5. EFFEXOR [Concomitant]

REACTIONS (1)
  - LUNG CANCER METASTATIC [None]
